FAERS Safety Report 6083515-2 (Version None)
Quarter: 2009Q1

REPORT INFORMATION
  Report Type: 
  Country: None (occurrence: None)
  Receive Date: 20090219
  Receipt Date: 20090212
  Transmission Date: 20090719
  Serious: Yes (Other)
  Sender: FDA-Public Use
  Company Number: DE-ABBOTT-09P-062-0557593-00

PATIENT
  Sex: Female

DRUGS (1)
  1. ERGENYL CHRONO GRANULES [Suspect]
     Indication: PETIT MAL EPILEPSY
     Route: 048

REACTIONS (4)
  - EPILEPSY [None]
  - HEPATOCELLULAR INJURY [None]
  - TRANSAMINASES INCREASED [None]
  - TREATMENT NONCOMPLIANCE [None]
